FAERS Safety Report 22657353 (Version 2)
Quarter: 2024Q1

REPORT INFORMATION
  Report Type: Report from Study
  Country: JP (occurrence: JP)
  Receive Date: 20230630
  Receipt Date: 20240105
  Transmission Date: 20240410
  Serious: Yes (Other)
  Sender: FDA-Public Use
  Company Number: JP-CELLTRION INC.-2023JP012915

PATIENT

DRUGS (10)
  1. INFLIXIMAB-DYYB [Suspect]
     Active Substance: INFLIXIMAB-DYYB
     Indication: Crohn^s disease
     Dosage: 970 MILLIGRAM
     Route: 041
     Dates: start: 20181029, end: 20181029
  2. INFLIXIMAB-DYYB [Suspect]
     Active Substance: INFLIXIMAB-DYYB
     Dosage: 1000 MILLIGRAM
     Route: 041
     Dates: start: 20181217, end: 20181217
  3. INFLIXIMAB-DYYB [Suspect]
     Active Substance: INFLIXIMAB-DYYB
     Dosage: 980 MILLIGRAM
     Route: 041
     Dates: start: 20190212, end: 20190212
  4. INFLIXIMAB-DYYB [Suspect]
     Active Substance: INFLIXIMAB-DYYB
     Dosage: 970 MILLIGRAM
     Route: 041
     Dates: start: 20190409, end: 20190409
  5. INFLIXIMAB-DYYB [Suspect]
     Active Substance: INFLIXIMAB-DYYB
     Dosage: 1000 MILLIGRAM
     Route: 041
     Dates: start: 20190924, end: 20190924
  6. INFLIXIMAB-DYYB [Suspect]
     Active Substance: INFLIXIMAB-DYYB
     Dosage: 980 MILLIGRAM
     Route: 041
     Dates: start: 20201019, end: 20201019
  7. INFLIXIMAB-DYYB [Suspect]
     Active Substance: INFLIXIMAB-DYYB
     Dosage: 990 MILLIGRAM
     Route: 041
     Dates: start: 20211116, end: 20211116
  8. INFLIXIMAB-DYYB [Suspect]
     Active Substance: INFLIXIMAB-DYYB
     Dosage: 1000 MILLIGRAM
     Route: 041
     Dates: start: 20221023, end: 20221023
  9. INFLIXIMAB-DYYB [Suspect]
     Active Substance: INFLIXIMAB-DYYB
     Dosage: 1070 MILLIGRAM
     Route: 041
     Dates: start: 20231119, end: 20231119
  10. AZATHIOPRINE [Concomitant]
     Active Substance: AZATHIOPRINE
     Dosage: 50 MILLIGRAM/DAY
     Route: 048

REACTIONS (6)
  - Nephrolithiasis [Not Recovered/Not Resolved]
  - Large intestine polyp [Recovered/Resolved]
  - Hepatic steatosis [Not Recovered/Not Resolved]
  - Rhinitis allergic [Not Recovered/Not Resolved]
  - Hypertension [Not Recovered/Not Resolved]
  - Overdose [Unknown]

NARRATIVE: CASE EVENT DATE: 20220512
